FAERS Safety Report 7816461-1 (Version None)
Quarter: 2011Q4

REPORT INFORMATION
  Report Type: 
  Country: None (occurrence: None)
  Receive Date: 20111017
  Receipt Date: 20111011
  Transmission Date: 20120403
  Serious: Yes (Death, Life-Threatening, Hospitalization)
  Sender: FDA-Public Use
  Company Number: DE-JNJFOC-20110909565

PATIENT
  Sex: Male
  Weight: 95 kg

DRUGS (4)
  1. PANTOPRAZOLE SODIUM [Concomitant]
     Indication: GASTROINTESTINAL DISORDER THERAPY
     Route: 048
  2. ZYTIGA [Suspect]
     Indication: PROSTATE CANCER
     Route: 048
     Dates: start: 20110526, end: 20110725
  3. BISOPROLOL [Concomitant]
     Indication: HYPERTENSION
     Route: 048
  4. DEXAMETHASONE [Concomitant]
     Indication: PROSTATE CANCER
     Route: 048

REACTIONS (2)
  - THROMBOTIC THROMBOCYTOPENIC PURPURA [None]
  - PROSTATIC SPECIFIC ANTIGEN INCREASED [None]
